FAERS Safety Report 11802864 (Version 1)
Quarter: 2015Q4

REPORT INFORMATION
  Report Type: Other
  Country: DE (occurrence: DE)
  Receive Date: 20151204
  Receipt Date: 20151204
  Transmission Date: 20160305
  Serious: Yes (Congenital Anomaly)
  Sender: FDA-Public Use
  Company Number: DE-VALIDUS PHARMACEUTICALS LLC-DE-2015VAL000791

PATIENT
  Sex: Male
  Weight: .57 kg

DRUGS (5)
  1. FOLIO                              /06866801/ [Concomitant]
     Indication: PRODUCT USED FOR UNKNOWN INDICATION
     Dosage: 0.8 MG, DAILY
     Dates: start: 20141029, end: 20150401
  2. METOPROLOL TARTRATE. [Suspect]
     Active Substance: METOPROLOL TARTRATE
     Indication: HYPERTENSION
     Dosage: 200 MG/DAY; THERAPY WAS HALTED FROM WEEK 7+0 UNTIL 7+5. REDUCED DOSAGE (100MG) ONLY SHORTLY IN WEEK
     Route: 064
     Dates: start: 20141029, end: 20150401
  3. NASENSPRAY RATIOPHARM [Concomitant]
     Indication: PRODUCT USED FOR UNKNOWN INDICATION
     Dosage: UNK
  4. MIFEGYNE [Concomitant]
     Active Substance: MIFEPRISTONE
     Indication: ABORTION INDUCED
     Dosage: UNK
     Dates: start: 20150331, end: 20150331
  5. PRESINOL [Concomitant]
     Active Substance: METHYLDOPA
     Indication: HYPERTENSION
     Dosage: UNK
     Dates: start: 20141217, end: 20141222

REACTIONS (3)
  - Spina bifida [Unknown]
  - Arnold-Chiari malformation [Unknown]
  - Meningomyelocele [Unknown]
